FAERS Safety Report 16682225 (Version 6)
Quarter: 2019Q3

REPORT INFORMATION
  Report Type: Spontaneous
  Country: US (occurrence: US)
  Receive Date: 20190808
  Receipt Date: 20190830
  Transmission Date: 20191004
  Serious: Yes (Hospitalization)
  Sender: FDA-Public Use
  Company Number: US-ALKERMES INC.-ALK-2019-004100

PATIENT
  Age: 32 Year
  Sex: Female
  Weight: 80.73 kg

DRUGS (2)
  1. ARISTADA INITIO [Suspect]
     Active Substance: ARIPIPRAZOLE LAUROXIL
     Indication: PRODUCT USED FOR UNKNOWN INDICATION
     Dosage: 675 MG, ONE TIME DOSE
     Route: 030
     Dates: start: 20190722, end: 20190722
  2. ARISTADA [Suspect]
     Active Substance: ARIPIPRAZOLE LAUROXIL
     Indication: PRODUCT USED FOR UNKNOWN INDICATION
     Dosage: 662 MG, UNK
     Route: 030
     Dates: start: 20190722

REACTIONS (6)
  - Lethargy [Recovering/Resolving]
  - Fluid intake reduced [Recovering/Resolving]
  - Hypophagia [Recovering/Resolving]
  - Mutism [Unknown]
  - Gait disturbance [Recovering/Resolving]
  - Disturbance in attention [Unknown]

NARRATIVE: CASE EVENT DATE: 20190805
